FAERS Safety Report 4449670-2 (Version None)
Quarter: 2004Q3

REPORT INFORMATION
  Report Type: 
  Country: None (occurrence: None)
  Receive Date: 20040913
  Receipt Date: 20040901
  Transmission Date: 20050211
  Serious: Yes (Hospitalization)
  Sender: FDA-Public Use
  Company Number: 2004231492JP

PATIENT
  Age: 76 Year
  Sex: Male

DRUGS (3)
  1. ESTRACYT(ESTRAMUSTINE PHOSPHATE)CAPSULE [Suspect]
     Indication: PROSTATE CANCER
     Dosage: 280 MG, ORAL
     Route: 048
     Dates: start: 20040415
  2. AMLODIPINE BESYLATE [Concomitant]
  3. IMIDAPRIL HYDROCHLORIDE (IMIDAPRIL HYDROCHLORIDE) [Concomitant]

REACTIONS (2)
  - GENERALISED OEDEMA [None]
  - PLEURAL EFFUSION [None]
